FAERS Safety Report 11107696 (Version 1)
Quarter: 2015Q2

REPORT INFORMATION
  Report Type: Spontaneous
  Country: US (occurrence: US)
  Receive Date: 20150512
  Receipt Date: 20150512
  Transmission Date: 20150821
  Serious: No
  Sender: FDA-Public Use
  Company Number: US-BAYER-2015-217083

PATIENT
  Age: 24 Year
  Sex: Female
  Weight: 70.3 kg

DRUGS (2)
  1. ONE A DAY [B12,D2,B3,B6,RETINOL,B2,NA+ ASCORB,B1 MONONITR] [Concomitant]
     Dosage: 2 DF, QD
     Route: 048
     Dates: start: 201505
  2. CLARITIN [Suspect]
     Active Substance: LORATADINE
     Indication: SEASONAL ALLERGY
     Dosage: 1 DF, ONCE
     Route: 048
     Dates: start: 20150506, end: 20150506

REACTIONS (1)
  - Drug ineffective [Unknown]

NARRATIVE: CASE EVENT DATE: 20150506
